FAERS Safety Report 11305545 (Version 1)
Quarter: 2015Q3

REPORT INFORMATION
  Report Type: Spontaneous
  Country: US (occurrence: US)
  Receive Date: 20150723
  Receipt Date: 20150723
  Transmission Date: 20151125
  Serious: No
  Sender: FDA-Public Use
  Company Number: US-JNJFOC-20140720847

PATIENT
  Age: 61 Year
  Sex: Female
  Weight: 58.06 kg

DRUGS (4)
  1. ZYRTEC [Suspect]
     Active Substance: CETIRIZINE HYDROCHLORIDE
     Route: 048
  2. ZYRTEC [Suspect]
     Active Substance: CETIRIZINE HYDROCHLORIDE
     Indication: MULTIPLE ALLERGIES
     Route: 048
     Dates: start: 20140727
  3. LIPITOR [Concomitant]
     Active Substance: ATORVASTATIN CALCIUM
     Indication: CARDIAC DISORDER
     Route: 065
  4. AMOXICILLIN. [Concomitant]
     Active Substance: AMOXICILLIN
     Indication: MULTIPLE ALLERGIES
     Route: 065
     Dates: start: 20140727

REACTIONS (2)
  - Drug ineffective [Unknown]
  - Product packaging issue [Unknown]
